FAERS Safety Report 9798971 (Version 2)
Quarter: 2014Q1

REPORT INFORMATION
  Report Type: Spontaneous
  Country: IL (occurrence: IL)
  Receive Date: 20140106
  Receipt Date: 20140218
  Transmission Date: 20141002
  Serious: Yes (Death)
  Sender: FDA-Public Use
  Company Number: IL-CELGENEUS-082-50794-13124642

PATIENT
  Age: 70 Year
  Sex: Male

DRUGS (2)
  1. VIDAZA [Suspect]
     Indication: MYELODYSPLASTIC SYNDROME
     Route: 058
     Dates: start: 20120415, end: 20131006
  2. VIDAZA [Suspect]
     Dosage: DOSE REDUCED
     Route: 058

REACTIONS (1)
  - Acute myeloid leukaemia [Fatal]
